FAERS Safety Report 8603556-8 (Version None)
Quarter: 2012Q3

REPORT INFORMATION
  Report Type: 
  Country: None (occurrence: None)
  Receive Date: 20120817
  Receipt Date: 20120810
  Transmission Date: 20120928
  Serious: Yes (Other)
  Sender: FDA-Public Use
  Company Number: PHHY2012US069989

PATIENT
  Age: 77 Year
  Sex: Female

DRUGS (6)
  1. LEVOFLOXACIN [Concomitant]
     Dosage: 750 MG, DAILY DOSE
     Route: 048
  2. BUFFERIN [Suspect]
     Indication: HEADACHE
     Dosage: 2 DF, AS NEEDED
     Route: 048
  3. EXCEDRIN (MIGRAINE) [Concomitant]
  4. BUFFERIN [Suspect]
     Indication: PAIN
  5. BUFFERIN [Suspect]
     Indication: FEELING OF RELAXATION
     Dosage: 3 DF, (2-3 DF AT NIGHT)
     Route: 048
  6. IBUPROFEN [Concomitant]

REACTIONS (3)
  - SPINAL FRACTURE [None]
  - INCORRECT DRUG ADMINISTRATION DURATION [None]
  - PNEUMONIA [None]
